FAERS Safety Report 19439317 (Version 1)
Quarter: 2021Q2

REPORT INFORMATION
  Report Type: Spontaneous
  Country: GB (occurrence: GB)
  Receive Date: 20210618
  Receipt Date: 20210618
  Transmission Date: 20210717
  Serious: Yes (Life-Threatening, Other)
  Sender: FDA-Public Use
  Company Number: GB-ELI_LILLY_AND_COMPANY-GB202106007239

PATIENT
  Age: 55 Year
  Sex: Female

DRUGS (5)
  1. GLUCAGON. [Suspect]
     Active Substance: GLUCAGON
     Dosage: 10 MG, UNKNOWN
     Route: 065
  2. NALOXONE [Suspect]
     Active Substance: NALOXONE
     Indication: OVERDOSE
     Dosage: 0.4 MG, UNKNOWN
     Route: 042
  3. ATROPINE. [Suspect]
     Active Substance: ATROPINE
     Indication: OVERDOSE
     Dosage: 0.6 MG, UNKNOWN
     Route: 042
  4. GLUCAGON. [Suspect]
     Active Substance: GLUCAGON
     Indication: OVERDOSE
     Dosage: 1 MG, UNKNOWN
     Route: 042
  5. GLUCAGON. [Suspect]
     Active Substance: GLUCAGON
     Dosage: 4 MG, UNKNOWN
     Route: 040

REACTIONS (3)
  - Left ventricular hypertrophy [Unknown]
  - Drug ineffective [Unknown]
  - Hypoglycaemia [Recovered/Resolved]
